FAERS Safety Report 8837982 (Version 3)
Quarter: 2012Q4

REPORT INFORMATION
  Report Type: 
  Country: JP (occurrence: JP)
  Receive Date: 20121012
  Receipt Date: 20121129
  Transmission Date: 20130627
  Serious: Yes (Hospitalization, Disabling)
  Sender: FDA-Public Use
  Company Number: JP-B.I. PHARMACEUTICALS,INC./RIDGEFIELD-2012-BP-24951NB

PATIENT
  Age: 85 Year
  Sex: Female
  Weight: 72 kg

DRUGS (5)
  1. PRAZAXA [Suspect]
     Indication: THROMBOSIS PROPHYLAXIS
     Dosage: 220 mg
     Route: 048
     Dates: start: 20120405, end: 20120803
  2. PRAZAXA [Suspect]
     Indication: ATRIAL FIBRILLATION
  3. NORVASC [Concomitant]
     Indication: HYPERTENSION
     Dosage: 5 mg
     Route: 048
     Dates: start: 20050427, end: 20120803
  4. LUPRAC [Concomitant]
     Indication: CARDIAC FAILURE CHRONIC
     Dosage: 8 mg
     Route: 048
     Dates: start: 20070427
  5. MEVALOTIN [Concomitant]
     Indication: HYPERLIPIDAEMIA
     Dosage: 10 mg
     Route: 048
     Dates: start: 20080418

REACTIONS (1)
  - Aplasia pure red cell [Not Recovered/Not Resolved]
